FAERS Safety Report 9747848 (Version 1)
Quarter: 2013Q4

REPORT INFORMATION
  Report Type: Spontaneous
  Country: IT (occurrence: None)
  Receive Date: 20131206
  Receipt Date: 20131206
  Transmission Date: 20140711
  Serious: Yes (Hospitalization)
  Sender: FDA-Public Use
  Company Number: FK201305108

PATIENT
  Age: 72 Year
  Sex: Male

DRUGS (1)
  1. VALPROATE [Suspect]
     Indication: MENTAL DISORDER
     Route: 048

REACTIONS (8)
  - Ventricular tachycardia [None]
  - Hyperammonaemia [None]
  - Hypokalaemia [None]
  - Thrombocytopenia [None]
  - Overdose [None]
  - Dehydration [None]
  - Miosis [None]
  - Hyporeflexia [None]
